FAERS Safety Report 15865403 (Version 2)
Quarter: 2019Q1

REPORT INFORMATION
  Report Type: Spontaneous
  Country: UY (occurrence: UY)
  Receive Date: 20190124
  Receipt Date: 20190315
  Transmission Date: 20190417
  Serious: Yes (Death, Hospitalization, Other)
  Sender: FDA-Public Use
  Company Number: UY-ABBVIE-19K-168-2637080-00

PATIENT
  Sex: Male

DRUGS (1)
  1. HUMIRA [Suspect]
     Active Substance: ADALIMUMAB
     Indication: ANKYLOSING SPONDYLITIS
     Route: 058
     Dates: end: 201809

REACTIONS (6)
  - Injury [Unknown]
  - Urinary incontinence [Unknown]
  - Pulmonary embolism [Fatal]
  - General physical health deterioration [Unknown]
  - Urinary tract infection [Unknown]
  - Hip fracture [Unknown]

NARRATIVE: CASE EVENT DATE: 201812
